FAERS Safety Report 17349167 (Version 5)
Quarter: 2021Q3

REPORT INFORMATION
  Report Type: Spontaneous
  Country: US (occurrence: US)
  Receive Date: 20200130
  Receipt Date: 20210902
  Transmission Date: 20211014
  Serious: Yes (Other)
  Sender: FDA-Public Use
  Company Number: US-GILEAD-2020-0448797

PATIENT
  Age: 36 Year
  Sex: Male
  Weight: 79.37 kg

DRUGS (53)
  1. VIREAD [Suspect]
     Active Substance: TENOFOVIR DISOPROXIL FUMARATE
     Dosage: UNK
     Route: 048
     Dates: start: 20170818, end: 20170823
  2. ISENTRESS [Concomitant]
     Active Substance: RALTEGRAVIR POTASSIUM
  3. SUSTIVA [Concomitant]
     Active Substance: EFAVIRENZ
  4. TRIUMEQ [Concomitant]
     Active Substance: ABACAVIR SULFATE\DOLUTEGRAVIR SODIUM\LAMIVUDINE
  5. DOXYCYCLINE HYCLATE. [Concomitant]
     Active Substance: DOXYCYCLINE HYCLATE
  6. CALCITRIOL. [Concomitant]
     Active Substance: CALCITRIOL
  7. DAPSONE. [Concomitant]
     Active Substance: DAPSONE
  8. VIREAD [Suspect]
     Active Substance: TENOFOVIR DISOPROXIL FUMARATE
     Dosage: UNK
     Route: 048
     Dates: start: 201302, end: 201503
  9. VIREAD [Suspect]
     Active Substance: TENOFOVIR DISOPROXIL FUMARATE
     Dosage: UNK
     Route: 048
     Dates: start: 2008
  10. HYDROCODONE/ACETAMINOPHEN [Concomitant]
     Active Substance: ACETAMINOPHEN\HYDROCODONE
  11. NIFEDIPINE. [Concomitant]
     Active Substance: NIFEDIPINE
  12. CALCIUM ACETATE. [Concomitant]
     Active Substance: CALCIUM ACETATE
  13. HEPARIN [Concomitant]
     Active Substance: HEPARIN SODIUM
  14. VIREAD [Suspect]
     Active Substance: TENOFOVIR DISOPROXIL FUMARATE
     Dosage: UNK
     Route: 048
     Dates: start: 201302, end: 201708
  15. COMBIVIR [Concomitant]
     Active Substance: LAMIVUDINE\ZIDOVUDINE
  16. FOSRENOL [Concomitant]
     Active Substance: LANTHANUM CARBONATE
  17. TRIZIVIR [Concomitant]
     Active Substance: ABACAVIR SULFATE\LAMIVUDINE\ZIDOVUDINE
  18. ATOVAQUONE. [Concomitant]
     Active Substance: ATOVAQUONE
  19. COLACE [Concomitant]
     Active Substance: DOCUSATE SODIUM
  20. VELPHORO [Concomitant]
     Active Substance: SUCROFERRIC OXYHYDROXIDE
  21. VIREAD [Suspect]
     Active Substance: TENOFOVIR DISOPROXIL FUMARATE
     Indication: HIV INFECTION
     Dosage: UNK
     Route: 048
     Dates: start: 2001, end: 20170802
  22. TRUVADA [Suspect]
     Active Substance: EMTRICITABINE\TENOFOVIR DISOPROXIL FUMARATE
     Indication: HIV INFECTION
     Dosage: UNK
     Route: 048
     Dates: start: 2009
  23. ACETAMINOPHEN. [Concomitant]
     Active Substance: ACETAMINOPHEN
  24. AMPICILLIN [Concomitant]
     Active Substance: AMPICILLIN
  25. AVLOSULFON [Concomitant]
     Active Substance: DAPSONE
  26. AZITHROMYCIN ANHYDROUS. [Concomitant]
     Active Substance: AZITHROMYCIN ANHYDROUS
  27. VITAMIN D2 [Concomitant]
     Active Substance: ERGOCALCIFEROL
  28. BACTRIM [Concomitant]
     Active Substance: SULFAMETHOXAZOLE\TRIMETHOPRIM
  29. ATRIPLA [Suspect]
     Active Substance: EFAVIRENZ\EMTRICITABINE\TENOFOVIR DISOPROXIL FUMARATE
     Dosage: UNK
     Route: 048
     Dates: start: 2010, end: 2013
  30. ZIAGEN [Concomitant]
     Active Substance: ABACAVIR SULFATE
  31. CANDESARTAN. [Concomitant]
     Active Substance: CANDESARTAN
  32. FERROUS SULFATE. [Concomitant]
     Active Substance: FERROUS SULFATE
  33. IRON SUCROSE [Concomitant]
     Active Substance: IRON SUCROSE
  34. TUMS ULTRA [Concomitant]
     Active Substance: CALCIUM CARBONATE
  35. ACYCLOVIR [ACICLOVIR] [Concomitant]
     Active Substance: ACYCLOVIR
  36. AMOXICILLIN. [Concomitant]
     Active Substance: AMOXICILLIN
  37. ATORVASTATIN [Concomitant]
     Active Substance: ATORVASTATIN
  38. VANCOMYCIN [Concomitant]
     Active Substance: VANCOMYCIN
  39. ATRIPLA [Suspect]
     Active Substance: EFAVIRENZ\EMTRICITABINE\TENOFOVIR DISOPROXIL FUMARATE
     Indication: HIV INFECTION
     Dosage: UNK
     Route: 048
     Dates: start: 2001, end: 20101007
  40. PREZISTA [Concomitant]
     Active Substance: DARUNAVIR ETHANOLATE
  41. AURYXIA [Concomitant]
     Active Substance: TETRAFERRIC TRICITRATE DECAHYDRATE
  42. DIALYVITE [Concomitant]
     Active Substance: ASCORBIC ACID\BIOTIN\CALCIUM PANTOTHENATE\COBALAMIN\FOLIC ACID\NIACINAMIDE\PYRIDOXINE HYDROCHLORIDE\RIBOFLAVIN\THIAMINE MONONITRATE
  43. DOXAZOSIN [Concomitant]
     Active Substance: DOXAZOSIN MESYLATE
  44. ETELCALCETIDE [Concomitant]
     Active Substance: ETELCALCETIDE
  45. LACTULOSE. [Concomitant]
     Active Substance: LACTULOSE
  46. ZITHROMAX [Concomitant]
     Active Substance: AZITHROMYCIN DIHYDRATE
  47. ATRIPLA [Suspect]
     Active Substance: EFAVIRENZ\EMTRICITABINE\TENOFOVIR DISOPROXIL FUMARATE
     Dosage: UNK
     Route: 048
     Dates: start: 2006, end: 2008
  48. ATRIPLA [Suspect]
     Active Substance: EFAVIRENZ\EMTRICITABINE\TENOFOVIR DISOPROXIL FUMARATE
     Dosage: UNK
     Route: 048
     Dates: start: 2007, end: 201009
  49. NORVIR [Concomitant]
     Active Substance: RITONAVIR
  50. TIVICAY [Concomitant]
     Active Substance: DOLUTEGRAVIR SODIUM
  51. SODIUM BICARBONATE. [Concomitant]
     Active Substance: SODIUM BICARBONATE
  52. PHOSLO [Concomitant]
     Active Substance: CALCIUM ACETATE
  53. SENSIPAR [Concomitant]
     Active Substance: CINACALCET HYDROCHLORIDE

REACTIONS (10)
  - End stage renal disease [Not Recovered/Not Resolved]
  - Economic problem [Not Recovered/Not Resolved]
  - Chronic kidney disease [Not Recovered/Not Resolved]
  - Acute kidney injury [Not Recovered/Not Resolved]
  - Renal failure [Not Recovered/Not Resolved]
  - Anhedonia [Not Recovered/Not Resolved]
  - Emotional distress [Not Recovered/Not Resolved]
  - Pain [Not Recovered/Not Resolved]
  - Anxiety [Recovered/Resolved]
  - Depression [Recovered/Resolved]

NARRATIVE: CASE EVENT DATE: 201009
